FAERS Safety Report 14067714 (Version 1)
Quarter: 2017Q4

REPORT INFORMATION
  Report Type: Spontaneous
  Country: US (occurrence: US)
  Receive Date: 20171009
  Receipt Date: 20171009
  Transmission Date: 20180321
  Serious: Yes (Other)
  Sender: FDA-Public Use
  Company Number: US-ELI_LILLY_AND_COMPANY-US201710001549

PATIENT
  Age: 57 Year
  Sex: Male

DRUGS (6)
  1. HUMULIN 70/30 [Suspect]
     Active Substance: INSULIN HUMAN
     Dosage: 64 DF, EACH MORNING AT LUNCH
     Route: 065
     Dates: start: 20170901
  2. HUMULIN 70/30 [Suspect]
     Active Substance: INSULIN HUMAN
     Dosage: 20 DF, DAILY AT LUNCH
     Route: 065
     Dates: start: 20170901
  3. METFORMIN [Concomitant]
     Active Substance: METFORMIN HYDROCHLORIDE
  4. HUMULIN N [Suspect]
     Active Substance: INSULIN HUMAN
     Indication: TYPE 2 DIABETES MELLITUS
     Dosage: UNK, UNKNOWN
     Route: 065
     Dates: start: 201603, end: 20170831
  5. HUMULIN 70/30 [Suspect]
     Active Substance: INSULIN HUMAN
     Dosage: 52 DF, EACH EVENING AT DINNER
     Route: 065
     Dates: start: 20170921
  6. HUMULIN 70/30 [Suspect]
     Active Substance: INSULIN HUMAN
     Indication: TYPE 2 DIABETES MELLITUS
     Dosage: UNK, UNKNOWN
     Route: 065
     Dates: start: 20170901

REACTIONS (5)
  - Pruritus [Unknown]
  - Neuropathy peripheral [Unknown]
  - Blood glucose increased [Unknown]
  - Thirst [Unknown]
  - Diabetic retinopathy [Unknown]

NARRATIVE: CASE EVENT DATE: 201705
